FAERS Safety Report 21814667 (Version 6)
Quarter: 2023Q2

REPORT INFORMATION
  Report Type: Report from Study
  Country: AR (occurrence: AR)
  Receive Date: 20230104
  Receipt Date: 20230623
  Transmission Date: 20230722
  Serious: Yes (Other)
  Sender: FDA-Public Use
  Company Number: AR-002147023-NVSC2022AR302171

PATIENT
  Age: 54 Year
  Sex: Female

DRUGS (8)
  1. COSENTYX [Suspect]
     Active Substance: SECUKINUMAB
     Indication: Psoriasis
     Dosage: 300 MG, QMO
     Route: 058
     Dates: start: 20220614
  2. COSENTYX [Suspect]
     Active Substance: SECUKINUMAB
     Dosage: 300 MG, QMO (THROUGH MOUTH)
     Route: 048
  3. COSENTYX [Suspect]
     Active Substance: SECUKINUMAB
     Dosage: 300 MG, QMO (ON THE SKIN)
     Route: 003
  4. COSENTYX [Suspect]
     Active Substance: SECUKINUMAB
     Dosage: UNK, (STOPPED ON AN UNKNOWN DATE IN DEC)
     Route: 065
     Dates: start: 20220614
  5. COSENTYX [Suspect]
     Active Substance: SECUKINUMAB
     Dosage: UNK
     Route: 065
     Dates: end: 20221201
  6. COSENTYX [Suspect]
     Active Substance: SECUKINUMAB
     Dosage: UNK, (INTERRUPTED ON AN UNKNOWN DATE IN JAN)
     Route: 065
  7. COSENTYX [Suspect]
     Active Substance: SECUKINUMAB
     Dosage: UNK
     Route: 065
     Dates: end: 20230228
  8. COSENTYX [Suspect]
     Active Substance: SECUKINUMAB
     Dosage: UNK
     Route: 065
     Dates: start: 202303

REACTIONS (4)
  - Tuberculosis [Unknown]
  - Ligament sprain [Unknown]
  - Gait disturbance [Unknown]
  - Incorrect route of product administration [Unknown]

NARRATIVE: CASE EVENT DATE: 20230301
